FAERS Safety Report 18395778 (Version 2)
Quarter: 2021Q1

REPORT INFORMATION
  Report Type: Spontaneous
  Country: US (occurrence: US)
  Receive Date: 20201018
  Receipt Date: 20210126
  Transmission Date: 20210419
  Serious: Yes (Hospitalization, Other)
  Sender: FDA-Public Use
  Company Number: US-SHIRE-US202033833

PATIENT
  Sex: Male

DRUGS (5)
  1. GATTEX [Suspect]
     Active Substance: TEDUGLUTIDE\WATER
     Indication: SHORT-BOWEL SYNDROME
     Dosage: 0.433 UNK, 1X/DAY:QD
     Route: 058
     Dates: start: 20200818
  2. STELARA [Concomitant]
     Active Substance: USTEKINUMAB
  3. GATTEX [Suspect]
     Active Substance: TEDUGLUTIDE\WATER
     Indication: SHORT-BOWEL SYNDROME
     Dosage: 0.433 UNK, 1X/DAY:QD
     Route: 058
     Dates: start: 20200818
  4. GATTEX [Suspect]
     Active Substance: TEDUGLUTIDE\WATER
     Indication: SHORT-BOWEL SYNDROME
     Dosage: 0.433 UNK, 1X/DAY:QD
     Route: 058
     Dates: start: 20200818
  5. GATTEX [Suspect]
     Active Substance: TEDUGLUTIDE\WATER
     Indication: SHORT-BOWEL SYNDROME
     Dosage: 0.433 UNK, 1X/DAY:QD
     Route: 058
     Dates: start: 20200818

REACTIONS (2)
  - Diarrhoea [Not Recovered/Not Resolved]
  - Bacteraemia [Unknown]
